FAERS Safety Report 9128628 (Version 1)
Quarter: 2013Q1

REPORT INFORMATION
  Report Type: Spontaneous
  Country: US (occurrence: US)
  Receive Date: 20130228
  Receipt Date: 20130228
  Transmission Date: 20140127
  Serious: Yes (Other)
  Sender: FDA-Public Use
  Company Number: US-MYLANLABS-2012S1019390

PATIENT
  Age: 29 Year
  Sex: Female
  Weight: 83.92 kg

DRUGS (2)
  1. DIVALPROEX SODIUM EXTENDED RELEASE [Suspect]
     Indication: BIPOLAR DISORDER
     Route: 048
     Dates: start: 200812, end: 201208
  2. DIVALPROEX SODIUM EXTENDED RELEASE [Suspect]
     Indication: SCHIZOAFFECTIVE DISORDER
     Route: 048
     Dates: start: 200812, end: 201208

REACTIONS (1)
  - Exposure during pregnancy [Not Recovered/Not Resolved]
